FAERS Safety Report 13267882 (Version 1)
Quarter: 2017Q1

REPORT INFORMATION
  Report Type: Spontaneous
  Country: US (occurrence: US)
  Receive Date: 20170224
  Receipt Date: 20170224
  Transmission Date: 20170428
  Serious: No
  Sender: FDA-Public Use
  Company Number: None

PATIENT
  Age: 53 Year
  Sex: Female
  Weight: 115.6 kg

DRUGS (1)
  1. INTRON A [Suspect]
     Active Substance: INTERFERON ALFA-2B
     Dates: end: 20131129

REACTIONS (8)
  - Dehydration [None]
  - Renal failure [None]
  - Non-cardiac chest pain [None]
  - Gastrooesophageal reflux disease [None]
  - White blood cell count decreased [None]
  - Back pain [None]
  - Insurance issue [None]
  - Bone pain [None]

NARRATIVE: CASE EVENT DATE: 20131211
